FAERS Safety Report 5994686-8 (Version None)
Quarter: 2008Q4

REPORT INFORMATION
  Report Type: 
  Country: None (occurrence: None)
  Receive Date: 20081212
  Receipt Date: 20081202
  Transmission Date: 20090506
  Serious: Yes (Other)
  Sender: FDA-Public Use
  Company Number: US-JNJCH-2008056347

PATIENT
  Age: 9 Year
  Sex: Male
  Weight: 36.3 kg

DRUGS (1)
  1. COOL MINT LISTERINE POCKETMIST [Suspect]
     Indication: ACCIDENTAL EXPOSURE
     Dosage: TEXT:UNSPECIFIED
     Route: 047

REACTIONS (4)
  - ACCIDENTAL EXPOSURE [None]
  - EYE IRRITATION [None]
  - EYE PRURITUS [None]
  - EYELID DISORDER [None]
